FAERS Safety Report 18225607 (Version 1)
Quarter: 2020Q3

REPORT INFORMATION
  Report Type: Spontaneous
  Country: JP (occurrence: JP)
  Receive Date: 20200903
  Receipt Date: 20200903
  Transmission Date: 20201103
  Serious: Yes (Other)
  Sender: FDA-Public Use
  Company Number: JP-INFO-001066

PATIENT
  Age: 6 Year
  Sex: Female

DRUGS (1)
  1. ROPIVACAINE. [Suspect]
     Active Substance: ROPIVACAINE HYDROCHLORIDE
     Indication: GENERAL ANAESTHESIA
     Dosage: 2 MG/ML
     Route: 031

REACTIONS (2)
  - Retinal degeneration [Recovered/Resolved with Sequelae]
  - Product administration error [Recovered/Resolved with Sequelae]
